FAERS Safety Report 9184677 (Version 1)
Quarter: 2013Q1

REPORT INFORMATION
  Report Type: Report from Study
  Country: IT (occurrence: IT)
  Receive Date: 20130324
  Receipt Date: 20130324
  Transmission Date: 20140127
  Serious: Yes (Other)
  Sender: FDA-Public Use
  Company Number: IT-ROCHE-1203833

PATIENT
  Sex: 0

DRUGS (2)
  1. PEG-INTERFERON ALFA 2A [Suspect]
     Indication: HEPATITIS C
     Route: 058
  2. RIBAVIRIN [Suspect]
     Indication: HEPATITIS C
     Dosage: DOSE RANGING FROM 200 TO 1200 MG/DAY
     Route: 048

REACTIONS (12)
  - Pancytopenia [Unknown]
  - Retinopathy [Unknown]
  - Renal failure acute [Unknown]
  - Pulmonary embolism [Unknown]
  - Pulmonary hypertension [Unknown]
  - Pancreatitis acute [Unknown]
  - Myocardial ischaemia [Unknown]
  - Hepatic artery thrombosis [Unknown]
  - Neuropathy peripheral [Unknown]
  - Mental disorder [Unknown]
  - Hypertriglyceridaemia [Unknown]
  - Skin reaction [Unknown]
